FAERS Safety Report 14566870 (Version 1)
Quarter: 2018Q1

REPORT INFORMATION
  Report Type: Other
  Country: ES (occurrence: ES)
  Receive Date: 20180223
  Receipt Date: 20180223
  Transmission Date: 20180509
  Serious: Yes (Other)
  Sender: FDA-Public Use
  Company Number: ES-GLENMARK PHARMACEUTICALS-2018GMK032317

PATIENT

DRUGS (1)
  1. IMIQUIMOD. [Suspect]
     Active Substance: IMIQUIMOD
     Indication: BASAL CELL CARCINOMA
     Dosage: 5 % IMIQUIMOD ONCE A DAY, 5 DAYS A WEEK FOR 6 WEEKS
     Route: 061

REACTIONS (2)
  - Eye ulcer [Recovered/Resolved]
  - Disease progression [Recovered/Resolved]
